FAERS Safety Report 17533896 (Version 1)
Quarter: 2020Q1

REPORT INFORMATION
  Report Type: Spontaneous
  Country: US (occurrence: US)
  Receive Date: 20200312
  Receipt Date: 20200312
  Transmission Date: 20200409
  Serious: Yes (Hospitalization)
  Sender: FDA-Public Use
  Company Number: None

PATIENT
  Age: 42 Year
  Sex: Male

DRUGS (1)
  1. SOFOSBUVIR/VELPATASVIR [Suspect]
     Active Substance: SOFOSBUVIR\VELPATASVIR
     Indication: HEPATITIS C
     Route: 048
     Dates: start: 20200215

REACTIONS (7)
  - Pyrexia [None]
  - Nausea [None]
  - Decreased appetite [None]
  - Headache [None]
  - Vomiting [None]
  - Fatigue [None]
  - Presyncope [None]

NARRATIVE: CASE EVENT DATE: 20200218
